FAERS Safety Report 20919238 (Version 1)
Quarter: 2022Q2

REPORT INFORMATION
  Report Type: Spontaneous
  Country: DE (occurrence: DE)
  Receive Date: 20220606
  Receipt Date: 20220606
  Transmission Date: 20220721
  Serious: Yes (Other)
  Sender: FDA-Public Use
  Company Number: None

PATIENT
  Age: 35 Year
  Sex: Female
  Weight: 51 kg

DRUGS (5)
  1. BISOPROLOL [Suspect]
     Active Substance: BISOPROLOL
     Indication: Hypertension
     Dosage: 7.5 [MG/D ]
     Route: 048
     Dates: start: 20210521, end: 20210724
  2. CANDESARTAN [Suspect]
     Active Substance: CANDESARTAN
     Indication: Hypertension
     Dosage: 16 [MG/D ]
     Route: 048
     Dates: start: 20210207, end: 20210509
  3. AMLODIPINE [Suspect]
     Active Substance: AMLODIPINE BESYLATE
     Indication: Hypertension
     Dosage: 5 [MG/D ]
     Route: 048
     Dates: start: 20210207, end: 20210509
  4. METHYLDOPA [Concomitant]
     Active Substance: METHYLDOPA
     Indication: Hypertension
     Dosage: 200 MG/D
     Route: 048
     Dates: start: 20210521, end: 20210724
  5. METHYLDOPA [Suspect]
     Active Substance: METHYLDOPA
     Indication: Hypertension
     Dosage: 2000 [MG/D ] 4 SEPARATED DOSES
     Route: 048
     Dates: start: 20210510, end: 20210724

REACTIONS (4)
  - Ultrasound uterus abnormal [Recovered/Resolved]
  - Foetal growth restriction [Recovered/Resolved]
  - Placental insufficiency [Recovered/Resolved]
  - Maternal exposure during pregnancy [Unknown]
